FAERS Safety Report 25355475 (Version 1)
Quarter: 2025Q2

REPORT INFORMATION
  Report Type: Spontaneous
  Country: US (occurrence: US)
  Receive Date: 20250525
  Receipt Date: 20250525
  Transmission Date: 20250717
  Serious: No
  Sender: GLAXOSMITHKLINE
  Company Number: US-GSK-US2025AMR059721

PATIENT
  Age: 75 Year
  Sex: Male

DRUGS (2)
  1. VENTOLIN HFA [Suspect]
     Active Substance: ALBUTEROL SULFATE
     Indication: Dyspnoea
  2. BENZONATATE [Concomitant]
     Active Substance: BENZONATATE
     Indication: Dyspnoea

REACTIONS (1)
  - Therapeutic response unexpected [Unknown]
